FAERS Safety Report 9663357 (Version 2)
Quarter: 2013Q4

REPORT INFORMATION
  Report Type: Spontaneous
  Country: US (occurrence: US)
  Receive Date: 20131101
  Receipt Date: 20131220
  Transmission Date: 20140711
  Serious: Yes (Other)
  Sender: FDA-Public Use
  Company Number: US-BRISTOL-MYERS SQUIBB COMPANY-19645936

PATIENT
  Age: 81 Year
  Sex: Male
  Weight: 78.46 kg

DRUGS (5)
  1. COUMADINE [Suspect]
     Indication: COAGULOPATHY
  2. ROBITUSSIN [Interacting]
     Indication: RESPIRATORY TRACT CONGESTION
     Dates: start: 20131009, end: 20131009
  3. DEXTROMETHORPHAN [Interacting]
     Indication: RESPIRATORY TRACT CONGESTION
     Dates: start: 20131009, end: 20131009
  4. AMIODARONE HCL [Interacting]
     Indication: ARRHYTHMIA
  5. ASPIRIN [Interacting]

REACTIONS (4)
  - Drug dependence [Unknown]
  - Feeling abnormal [Recovering/Resolving]
  - Abnormal behaviour [Recovering/Resolving]
  - Drug interaction [Unknown]
